FAERS Safety Report 5161391-X (Version None)
Quarter: 2006Q4

REPORT INFORMATION
  Report Type: 
  Country: None (occurrence: None)
  Receive Date: 20061130
  Receipt Date: 20060822
  Transmission Date: 20070319
  Serious: No
  Sender: FDA-Public Use
  Company Number: US-GLAXOSMITHKLINE-A0617835A

PATIENT
  Sex: Female

DRUGS (5)
  1. EPZICOM [Suspect]
     Indication: HIV INFECTION
     Dosage: 600MG PER DAY
     Route: 048
     Dates: start: 20060801, end: 20060801
  2. BACTRIM [Concomitant]
  3. AZITHROMYCIN [Concomitant]
  4. REYATAZ [Concomitant]
  5. RITONAVIR [Concomitant]

REACTIONS (1)
  - SWELLING [None]
